FAERS Safety Report 8432358-0 (Version None)
Quarter: 2012Q2

REPORT INFORMATION
  Report Type: 
  Country: None (occurrence: None)
  Receive Date: 20120613
  Receipt Date: 20120611
  Transmission Date: 20120825
  Serious: Yes (Disabling, Other)
  Sender: FDA-Public Use
  Company Number: PHHY2011US61815

PATIENT
  Sex: Female
  Weight: 61.36 kg

DRUGS (11)
  1. MULTI-VITAMINS [Concomitant]
     Route: 048
  2. FERROUS SULFATE TAB [Concomitant]
     Dosage: 325 MG,
     Route: 048
  3. METFORMIN HCL [Concomitant]
     Indication: DIABETES MELLITUS
     Dosage: 500 MG, QHS
     Route: 048
     Dates: start: 20110601
  4. CHEMOTHERAPEUTICS [Concomitant]
     Route: 048
  5. FOLIC ACID [Concomitant]
     Dosage: 1 MG, QD
     Route: 048
     Dates: start: 20110601
  6. ANTIDEPRESSANTS [Concomitant]
     Route: 065
  7. GLIPIZIDE [Concomitant]
     Indication: DIABETES MELLITUS
     Dosage: 10 MG, BID
     Route: 048
     Dates: start: 20101001
  8. ZOMETA [Suspect]
     Indication: METASTASES TO BONE
     Dosage: 4 MG, MONTHLY
     Route: 042
     Dates: start: 20101021, end: 20110519
  9. EZETIMIBE/SAMVASTATIN [Concomitant]
     Dosage: 10-40 MG, QD
     Route: 048
     Dates: start: 20110601
  10. AFINITOR [Suspect]
     Indication: RENAL CELL CARCINOMA
     Dosage: 5 MG, QD
     Route: 048
     Dates: start: 20101003
  11. ACETAMINOPHEN [Concomitant]
     Dates: start: 20110601

REACTIONS (17)
  - MEAN CELL VOLUME ABNORMAL [None]
  - HYPOAESTHESIA ORAL [None]
  - BONE DISORDER [None]
  - BLOOD CREATININE INCREASED [None]
  - RED BLOOD CELL COUNT DECREASED [None]
  - MEAN CELL HAEMOGLOBIN DECREASED [None]
  - EXPOSED BONE IN JAW [None]
  - RENAL FUNCTION TEST ABNORMAL [None]
  - HAEMOGLOBIN DECREASED [None]
  - NEUTROPHIL COUNT INCREASED [None]
  - JAW FRACTURE [None]
  - RED CELL DISTRIBUTION WIDTH INCREASED [None]
  - GLOMERULAR FILTRATION RATE INCREASED [None]
  - BLOOD COUNT ABNORMAL [None]
  - TOOTHACHE [None]
  - BLOOD GLUCOSE INCREASED [None]
  - MEAN PLATELET VOLUME DECREASED [None]
